FAERS Safety Report 12337440 (Version 2)
Quarter: 2016Q2

REPORT INFORMATION
  Report Type: Spontaneous
  Country: US (occurrence: US)
  Receive Date: 20160505
  Receipt Date: 20160516
  Transmission Date: 20160815
  Serious: Yes (Other)
  Sender: FDA-Public Use
  Company Number: US-PFIZER INC-2016240409

PATIENT
  Age: 30 Year
  Sex: Female

DRUGS (1)
  1. GEODON [Suspect]
     Active Substance: ZIPRASIDONE HYDROCHLORIDE\ZIPRASIDONE MESYLATE
     Dosage: UNK

REACTIONS (7)
  - Apathy [Unknown]
  - Sedation [Unknown]
  - Dizziness [Unknown]
  - Mental impairment [Unknown]
  - Depersonalisation/derealisation disorder [Recovering/Resolving]
  - Fatigue [Unknown]
  - Dissociation [Unknown]
